FAERS Safety Report 15114012 (Version 4)
Quarter: 2018Q3

REPORT INFORMATION
  Report Type: Spontaneous
  Country: US (occurrence: US)
  Receive Date: 20180706
  Receipt Date: 20180731
  Transmission Date: 20181010
  Serious: No
  Sender: FDA-Public Use
  Company Number: PHEH2018US027131

PATIENT
  Sex: Female

DRUGS (2)
  1. DOXYCYCLINE. [Concomitant]
     Active Substance: DOXYCYCLINE
     Indication: PRODUCT USED FOR UNKNOWN INDICATION
     Dosage: 1 DF, BID (FOR 10 DAYS)
     Route: 048
  2. TRIMETHOPRIM/POLYMYXIN B [Suspect]
     Active Substance: POLYMYXIN B SULFATE\TRIMETHOPRIM
     Indication: PRODUCT USED FOR UNKNOWN INDICATION
     Dosage: UNK UNK, Q4H (FOR 05 DAYS)
     Route: 047

REACTIONS (7)
  - Eye pain [Unknown]
  - Eyelid oedema [Unknown]
  - Product packaging issue [Unknown]
  - Product label issue [Unknown]
  - Eye irritation [Unknown]
  - Product use complaint [Unknown]
  - Ocular hyperaemia [Unknown]

NARRATIVE: CASE EVENT DATE: 20180624
